FAERS Safety Report 17543977 (Version 1)
Quarter: 2020Q1

REPORT INFORMATION
  Report Type: Report from Study
  Country: US (occurrence: US)
  Receive Date: 20200316
  Receipt Date: 20200316
  Transmission Date: 20200409
  Serious: Yes (Hospitalization, Other)
  Sender: FDA-Public Use
  Company Number: NVSC2020US069767

PATIENT
  Sex: Female

DRUGS (1)
  1. PROMACTA [Suspect]
     Active Substance: ELTROMBOPAG OLAMINE
     Indication: PRODUCT USED FOR UNKNOWN INDICATION
     Dosage: UNK
     Route: 065

REACTIONS (7)
  - Product dose omission [Unknown]
  - Asthma [Unknown]
  - Loss of consciousness [Unknown]
  - Platelet count decreased [Unknown]
  - Seizure [Unknown]
  - Cerebrovascular accident [Unknown]
  - Autoimmune disorder [Unknown]
